FAERS Safety Report 4604960-5 (Version None)
Quarter: 2005Q1

REPORT INFORMATION
  Report Type: 
  Country: None (occurrence: None)
  Receive Date: 20050311
  Receipt Date: 20050307
  Transmission Date: 20050727
  Serious: Yes (Other)
  Sender: FDA-Public Use
  Company Number: PHRM2005FR00989

PATIENT
  Age: 23 Year
  Sex: Male

DRUGS (3)
  1. NEORAL [Suspect]
     Indication: LUNG TRANSPLANT
     Dosage: UNK, UNK
     Route: 048
     Dates: start: 20050130
  2. CELLCEPT [Concomitant]
     Indication: LUNG TRANSPLANT
     Dosage: 250 MG, BID
     Route: 048
  3. CORTICOSTEROID NOS [Concomitant]
     Dosage: 15 MG DAILY
     Route: 048

REACTIONS (1)
  - SKIN DYSTROPHY [None]
